FAERS Safety Report 6242050-9 (Version None)
Quarter: 2009Q2

REPORT INFORMATION
  Report Type: 
  Country: None (occurrence: None)
  Receive Date: 20090623
  Receipt Date: 20090611
  Transmission Date: 20091009
  Serious: Yes (Other)
  Sender: FDA-Public Use
  Company Number: PHHY2009GB23128

PATIENT
  Age: 49 Year
  Sex: Male

DRUGS (3)
  1. CYCLOSPORINE [Suspect]
     Indication: PSORIASIS
     Dosage: UNK
  2. CLOMIPRAMINE HCL [Interacting]
     Dosage: UNK
  3. DOTHIEPIN [Concomitant]

REACTIONS (3)
  - DRUG INTERACTION [None]
  - GLOMERULAR FILTRATION RATE DECREASED [None]
  - RENAL IMPAIRMENT [None]
